FAERS Safety Report 10004768 (Version 1)
Quarter: 2014Q1

REPORT INFORMATION
  Report Type: Spontaneous
  Country: FR (occurrence: FR)
  Receive Date: 20140312
  Receipt Date: 20140312
  Transmission Date: 20141002
  Serious: Yes (Hospitalization)
  Sender: FDA-Public Use
  Company Number: FR-GLAXOSMITHKLINE-B0973487A

PATIENT
  Age: 82 Year
  Sex: Female

DRUGS (5)
  1. ARIXTRA [Suspect]
     Indication: DEEP VEIN THROMBOSIS
     Dosage: 7.5MG PER DAY
     Route: 058
     Dates: start: 20140117, end: 20140207
  2. XARELTO [Suspect]
     Indication: DEEP VEIN THROMBOSIS
     Dosage: 20MG PER DAY
     Route: 048
     Dates: start: 20140207, end: 20140212
  3. ATACAND [Concomitant]
     Indication: PRODUCT USED FOR UNKNOWN INDICATION
     Dosage: 4MG PER DAY
     Dates: start: 201312
  4. AVLOCARDYL [Concomitant]
     Indication: PRODUCT USED FOR UNKNOWN INDICATION
  5. PRESERVISION [Concomitant]
     Indication: PRODUCT USED FOR UNKNOWN INDICATION

REACTIONS (4)
  - Haemorrhage [Recovered/Resolved]
  - Normochromic normocytic anaemia [Recovered/Resolved]
  - Haematoma [Recovered/Resolved]
  - Flank pain [Recovered/Resolved]
